FAERS Safety Report 7509179-6 (Version None)
Quarter: 2011Q2

REPORT INFORMATION
  Report Type: 
  Country: None (occurrence: None)
  Receive Date: 20110527
  Receipt Date: 20101202
  Transmission Date: 20111010
  Serious: No
  Sender: FDA-Public Use
  Company Number: US-MYLANLABS-2010S1022246

PATIENT
  Sex: Female

DRUGS (1)
  1. AMITRIPTYLINE HCL [Suspect]
     Indication: MIGRAINE PROPHYLAXIS
     Route: 048
     Dates: start: 20101123

REACTIONS (2)
  - REACTION TO DRUG EXCIPIENTS [None]
  - HEADACHE [None]
